FAERS Safety Report 8903296 (Version 2)
Quarter: 2013Q4

REPORT INFORMATION
  Report Type: Spontaneous
  Country: US (occurrence: US)
  Receive Date: 20121112
  Receipt Date: 20131127
  Transmission Date: 20140711
  Serious: No
  Sender: FDA-Public Use
  Company Number: US-ASTRAZENECA-2012SE80161

PATIENT
  Age: 50 Year
  Sex: Female

DRUGS (4)
  1. SYMBICORT PMDI [Suspect]
     Dosage: 160/4.5 1 INHALATION, BID
     Route: 055
  2. NEXIUM [Suspect]
     Route: 048
  3. CRESTOR [Suspect]
     Route: 048
  4. FLU SHOT [Suspect]
     Indication: INFLUENZA
     Route: 065

REACTIONS (8)
  - Pain [Unknown]
  - Nasal congestion [Unknown]
  - Influenza [Unknown]
  - Pneumonia [Unknown]
  - Adverse event [Unknown]
  - Cough [Unknown]
  - Fatigue [Unknown]
  - Intentional drug misuse [Unknown]
